FAERS Safety Report 4749924-6 (Version None)
Quarter: 2005Q3

REPORT INFORMATION
  Report Type: 
  Country: None (occurrence: None)
  Receive Date: 20050822
  Receipt Date: 20050816
  Transmission Date: 20060218
  Serious: Yes (Death, Hospitalization)
  Sender: FDA-Public Use
  Company Number: GBWYE826712JUL05

PATIENT
  Age: 28 Year
  Sex: Male

DRUGS (2)
  1. EFFEXOR XR [Suspect]
     Indication: DEPRESSION
     Dosage: SEE IMAGE
     Route: 048
     Dates: start: 20030701, end: 20030701
  2. EFFEXOR XR [Suspect]
     Indication: PERSONALITY DISORDER
     Dosage: SEE IMAGE
     Route: 048
     Dates: start: 20030701, end: 20030701

REACTIONS (10)
  - ACUTE RESPIRATORY DISTRESS SYNDROME [None]
  - CARDIOTOXICITY [None]
  - COMPLETED SUICIDE [None]
  - CONVULSION [None]
  - DISSEMINATED INTRAVASCULAR COAGULATION [None]
  - HAEMODIALYSIS [None]
  - INTENTIONAL MISUSE [None]
  - OVERDOSE [None]
  - RENAL FAILURE ACUTE [None]
  - VENTRICULAR TACHYCARDIA [None]
